FAERS Safety Report 6044374-7 (Version None)
Quarter: 2009Q1

REPORT INFORMATION
  Report Type: 
  Country: None (occurrence: None)
  Receive Date: 20090115
  Receipt Date: 20090115
  Transmission Date: 20090719
  Serious: No
  Sender: FDA-Public Use
  Company Number: None

PATIENT
  Sex: Female

DRUGS (6)
  1. ACTONEL [Suspect]
     Indication: OSTEOPENIA
     Dosage: 35 MG WEEKLY ORAL
     Route: 048
     Dates: start: 20010101, end: 20070101
  2. AVALIDE [Concomitant]
  3. ASPIRIN [Concomitant]
  4. CALTRATE [Suspect]
  5. VITAMINS C [Concomitant]
  6. LUMIGAN [Concomitant]

REACTIONS (4)
  - BONE DISORDER [None]
  - JAW DISORDER [None]
  - ORAL MUCOSAL ERYTHEMA [None]
  - ORAL TORUS [None]
